FAERS Safety Report 4412939-1 (Version None)
Quarter: 2004Q3

REPORT INFORMATION
  Report Type: 
  Country: None (occurrence: None)
  Receive Date: 20040802
  Receipt Date: 20030620
  Transmission Date: 20050211
  Serious: No
  Sender: FDA-Public Use
  Company Number: US-GLAXOSMITHKLINE-A0413381A

PATIENT
  Age: 2 Year
  Sex: Female

DRUGS (2)
  1. ZANTAC [Suspect]
     Indication: PROPHYLAXIS
     Dosage: 2CC TWICE PER DAY
     Route: 048
     Dates: start: 20030618, end: 20030619
  2. NAPROSYN [Concomitant]

REACTIONS (1)
  - RETCHING [None]
